FAERS Safety Report 19933807 (Version 5)
Quarter: 2021Q4

REPORT INFORMATION
  Report Type: Spontaneous
  Country: AU (occurrence: AU)
  Receive Date: 20211008
  Receipt Date: 20211130
  Transmission Date: 20220303
  Serious: Yes (Hospitalization, Other)
  Sender: FDA-Public Use
  Company Number: AU-KOREA IPSEN PHARMA-2021-24132

PATIENT
  Age: 46 Year
  Sex: Female

DRUGS (5)
  1. DYSPORT [Suspect]
     Active Substance: ABOBOTULINUMTOXINA
     Indication: Skin wrinkling
     Dosage: 135 IU (TO GLABELLAR LINES, LATERAL CANTHUS , FRONTALIS AND MENTALIS)
     Route: 065
     Dates: start: 20210820, end: 20210820
  2. DYSPORT [Suspect]
     Active Substance: ABOBOTULINUMTOXINA
     Indication: Skin wrinkling
  3. DYSPORT [Suspect]
     Active Substance: ABOBOTULINUMTOXINA
     Indication: Skin wrinkling
  4. DYSPORT [Suspect]
     Active Substance: ABOBOTULINUMTOXINA
     Indication: Skin wrinkling
  5. DYSPORT [Suspect]
     Active Substance: ABOBOTULINUMTOXINA
     Indication: Off label use

REACTIONS (44)
  - Nausea [Unknown]
  - Pain [Unknown]
  - Decreased appetite [Unknown]
  - Pain in jaw [Unknown]
  - Anaphylactic reaction [Recovered/Resolved]
  - Gait inability [Recovered/Resolved]
  - Feeding disorder [Recovered/Resolved]
  - Injection site bruising [Recovered/Resolved]
  - Sneezing [Recovered/Resolved]
  - Oropharyngeal discomfort [Recovered/Resolved]
  - Throat irritation [Recovered/Resolved]
  - Feeling abnormal [Recovered/Resolved]
  - Facial pain [Recovered/Resolved]
  - Ear pain [Recovered/Resolved]
  - Pain in jaw [Recovered/Resolved]
  - Fatigue [Not Recovered/Not Resolved]
  - Back pain [Recovered/Resolved]
  - Weight decreased [Recovered/Resolved]
  - Headache [Not Recovered/Not Resolved]
  - Oropharyngeal pain [Recovered/Resolved]
  - Neck pain [Recovered/Resolved]
  - Paraesthesia [Recovered/Resolved]
  - Lymphadenopathy [Recovered/Resolved]
  - Pharyngeal erythema [Recovered/Resolved]
  - Eye swelling [Recovered/Resolved]
  - Eye movement disorder [Unknown]
  - Pyrexia [Unknown]
  - Migraine [Not Recovered/Not Resolved]
  - Hot flush [Unknown]
  - Sinus pain [Unknown]
  - Eye pain [Unknown]
  - Electric shock sensation [Unknown]
  - Lymph node pain [Unknown]
  - Malaise [Unknown]
  - Paraesthesia [Not Recovered/Not Resolved]
  - Sinonasal obstruction [Recovered/Resolved]
  - Ear discomfort [Recovered/Resolved]
  - Facial pain [Unknown]
  - Ear pain [Not Recovered/Not Resolved]
  - Off label use [Unknown]
  - Off label use [Unknown]
  - Prescribed overdose [Unknown]
  - Wrong technique in product usage process [Unknown]
  - Drug effective for unapproved indication [Unknown]

NARRATIVE: CASE EVENT DATE: 20210101
